FAERS Safety Report 8812474 (Version 1)
Quarter: 2012Q4

REPORT INFORMATION
  Report Type: 
  Country: PH (occurrence: PH)
  Receive Date: 20120927
  Receipt Date: 20120927
  Transmission Date: 20130627
  Serious: Yes (Death)
  Sender: FDA-Public Use
  Company Number: PHHY2009PH01325

PATIENT
  Age: 29 Year
  Sex: Male

DRUGS (2)
  1. GLIVEC [Suspect]
     Indication: CHRONIC MYELOID LEUKAEMIA
     Dosage: 400 mg, UNK
     Route: 048
     Dates: start: 20040326
  2. GLIVEC [Suspect]
     Dosage: 600 mg, UNK
     Route: 048

REACTIONS (5)
  - Neoplasm progression [Fatal]
  - Malignant neoplasm progression [Fatal]
  - Gastrointestinal haemorrhage [Fatal]
  - Soft tissue haemorrhage [Fatal]
  - Platelet count decreased [Fatal]
